FAERS Safety Report 20583348 (Version 1)
Quarter: 2022Q1

REPORT INFORMATION
  Report Type: Spontaneous
  Country: US (occurrence: US)
  Receive Date: 20220311
  Receipt Date: 20220311
  Transmission Date: 20220424
  Serious: No
  Sender: FDA-Public Use
  Company Number: US-FOUNDATIONCONSUMERHC-2022-US-000223

PATIENT
  Age: 44 Year
  Sex: Female
  Weight: 74.84 kg

DRUGS (5)
  1. PLAN B ONE-STEP [Suspect]
     Active Substance: LEVONORGESTREL
     Indication: Post coital contraception
     Dosage: 1.5 MG TABLET X 1 DOSE
     Route: 048
     Dates: start: 20211219, end: 20211219
  2. TRINESSA [Suspect]
     Active Substance: ETHINYL ESTRADIOL\NORGESTIMATE
     Route: 048
     Dates: start: 20211220, end: 20220102
  3. VITAMINS [Concomitant]
     Active Substance: VITAMINS
  4. PREDNISONE [Suspect]
     Active Substance: PREDNISONE
     Dosage: 20MG TWICE DAILY FOR 7 DAYS
     Dates: start: 20211231
  5. AUGMENTIN [Suspect]
     Active Substance: AMOXICILLIN\CLAVULANATE POTASSIUM
     Dosage: 875 MG TWICE DAILY FOR 7 DAYS
     Dates: start: 20211231

REACTIONS (3)
  - Menstruation delayed [Not Recovered/Not Resolved]
  - Sinusitis [Not Recovered/Not Resolved]
  - Ear infection [Not Recovered/Not Resolved]

NARRATIVE: CASE EVENT DATE: 20211230
